FAERS Safety Report 24166926 (Version 1)
Quarter: 2024Q3

REPORT INFORMATION
  Report Type: Spontaneous
  Country: US (occurrence: None)
  Receive Date: 20240801
  Receipt Date: 20240801
  Transmission Date: 20241016
  Serious: Yes (Death)
  Sender: Public
  Company Number: None

PATIENT
  Age: 73 Year
  Sex: Male

DRUGS (4)
  1. EMGALITY [Suspect]
     Active Substance: GALCANEZUMAB-GNLM
     Indication: Migraine
     Dosage: OTHER FREQUENCY : ONCE MONTHLY;?
     Route: 058
     Dates: start: 20230329, end: 20240728
  2. ALPRAZOLAM [Concomitant]
     Active Substance: ALPRAZOLAM
     Dates: start: 20231208
  3. BUSPIRONE [Concomitant]
     Active Substance: BUSPIRONE HYDROCHLORIDE
     Dates: start: 20220301
  4. MEMANTINE [Concomitant]
     Active Substance: MEMANTINE
     Dates: start: 20220330

REACTIONS (1)
  - Death [None]

NARRATIVE: CASE EVENT DATE: 20240728
